FAERS Safety Report 7534018-7 (Version None)
Quarter: 2011Q2

REPORT INFORMATION
  Report Type: 
  Country: None (occurrence: None)
  Receive Date: 20110608
  Receipt Date: 20060821
  Transmission Date: 20111010
  Serious: Yes (Life-Threatening, Hospitalization, Other)
  Sender: FDA-Public Use
  Company Number: PHMT2006CA01573

PATIENT
  Sex: Male

DRUGS (2)
  1. CLOZAPINE [Suspect]
     Indication: SCHIZOPHRENIA
     Dosage: 550 MG, UNK
     Route: 048
     Dates: start: 19960226
  2. RISPERIDONE [Concomitant]
     Dosage: 1 MG, UNK
     Route: 048

REACTIONS (2)
  - BLOOD CREATININE INCREASED [None]
  - HYPONATRAEMIA [None]
